FAERS Safety Report 16565351 (Version 1)
Quarter: 2019Q3

REPORT INFORMATION
  Report Type: Spontaneous
  Country: US (occurrence: US)
  Receive Date: 20190531
  Receipt Date: 20190531
  Transmission Date: 20191004
  Serious: Yes (Hospitalization)
  Sender: FDA-Public Use
  Company Number: None

PATIENT
  Age: 80 Year
  Sex: Female
  Weight: 69.85 kg

DRUGS (7)
  1. CEPHALEXIN. [Concomitant]
     Active Substance: CEPHALEXIN
  2. CALCIUM [Concomitant]
     Active Substance: CALCIUM
  3. PROLIA [Suspect]
     Active Substance: DENOSUMAB
     Indication: OSTEOPOROSIS
     Dosage: ?          OTHER FREQUENCY:EVERY 6 MONTHS;?
     Dates: start: 20131017, end: 20180316
  4. LOSARTAN POTASSIUM. [Concomitant]
     Active Substance: LOSARTAN POTASSIUM
  5. VITAMIN D [Concomitant]
     Active Substance: VITAMIN D NOS
  6. PROLIA [Suspect]
     Active Substance: DENOSUMAB
     Indication: OSTEOARTHRITIS
     Dosage: ?          OTHER FREQUENCY:EVERY 6 MONTHS;?
     Dates: start: 20131017, end: 20180316
  7. ESOMEPRAZOLE. [Concomitant]
     Active Substance: ESOMEPRAZOLE MAGNESIUM

REACTIONS (1)
  - Osteonecrosis of jaw [None]

NARRATIVE: CASE EVENT DATE: 20131017
